FAERS Safety Report 6625801-0 (Version None)
Quarter: 2010Q1

REPORT INFORMATION
  Report Type: 
  Country: None (occurrence: None)
  Receive Date: 20100310
  Receipt Date: 20100305
  Transmission Date: 20100710
  Serious: Yes (Death)
  Sender: FDA-Public Use
  Company Number: US-MERCK-0801USA00491

PATIENT
  Age: 64 Year
  Sex: Male

DRUGS (5)
  1. VYTORIN [Suspect]
     Route: 048
  2. BUMETANIDE [Suspect]
     Route: 048
  3. POTASSIUM (UNSPECIFIED) [Suspect]
     Route: 048
  4. METFORMIN [Suspect]
     Route: 048
  5. ACETAMINOPHEN [Suspect]
     Route: 048

REACTIONS (2)
  - COMPLETED SUICIDE [None]
  - OVERDOSE [None]
